FAERS Safety Report 14922924 (Version 3)
Quarter: 2024Q1

REPORT INFORMATION
  Report Type: Spontaneous
  Country: FR (occurrence: FR)
  Receive Date: 20180522
  Receipt Date: 20240112
  Transmission Date: 20240410
  Serious: Yes (Life-Threatening)
  Sender: FDA-Public Use
  Company Number: FR-AUROBINDO-AUR-APL-2018-026668

PATIENT
  Age: 53 Year
  Sex: Female

DRUGS (13)
  1. CEFIXIME [Suspect]
     Active Substance: CEFIXIME
     Indication: Allergy test
     Dosage: 176 MILLIGRAM IN TOTAL
     Route: 048
     Dates: start: 20180328, end: 20180328
  2. CEFTRIAXONE [Suspect]
     Active Substance: CEFTRIAXONE\CEFTRIAXONE SODIUM
     Indication: Allergy test
     Dosage: UNK
     Route: 023
  3. CEFUROXIME [Suspect]
     Active Substance: CEFUROXIME
     Indication: Allergy test
     Dosage: UNK
     Route: 023
     Dates: start: 20180328, end: 20180328
  4. AMOXICILLIN [Suspect]
     Active Substance: AMOXICILLIN
     Indication: Allergy test
     Dosage: UNK
     Route: 023
     Dates: start: 20180328
  5. CEFOTAXIME SODIUM [Suspect]
     Active Substance: CEFOTAXIME SODIUM
     Indication: Allergy test
     Dosage: UNK
     Route: 023
     Dates: start: 20180328
  6. CEFAZOLIN [Suspect]
     Active Substance: CEFAZOLIN
     Indication: Allergy test
     Dosage: UNK
     Route: 023
     Dates: start: 20180328
  7. CLOXACILLIN [Suspect]
     Active Substance: CLOXACILLIN
     Indication: Allergy test
     Dosage: UNK
     Route: 023
  8. TAZOBACTAM [Suspect]
     Active Substance: TAZOBACTAM
     Indication: Allergy test
     Dosage: UNK
     Route: 023
     Dates: start: 20180328
  9. PENICILLIN G SODIUM [Suspect]
     Active Substance: PENICILLIN G SODIUM
     Indication: Allergy test
     Dosage: ()
     Route: 023
     Dates: start: 20180328
  10. PIPERACILLIN SODIUM [Suspect]
     Active Substance: PIPERACILLIN SODIUM
     Indication: Allergy test
     Dosage: UNK
     Route: 023
  11. FLUOXETINE [Concomitant]
     Active Substance: FLUOXETINE HYDROCHLORIDE
     Indication: Product used for unknown indication
     Dosage: UNK
     Route: 065
  12. TRAMADOL HYDROCHLORIDE [Concomitant]
     Active Substance: TRAMADOL HYDROCHLORIDE
     Indication: Product used for unknown indication
     Dosage: UNK
     Route: 065
  13. OXAZEPAM [Concomitant]
     Active Substance: OXAZEPAM
     Indication: Product used for unknown indication
     Dosage: UNK
     Route: 065

REACTIONS (1)
  - Angioedema [Recovered/Resolved]

NARRATIVE: CASE EVENT DATE: 20180328
